FAERS Safety Report 7080873-7 (Version None)
Quarter: 2010Q4

REPORT INFORMATION
  Report Type: 
  Country: None (occurrence: None)
  Receive Date: 20101102
  Receipt Date: 20101102
  Transmission Date: 20110411
  Serious: Yes (Disabling, Other)
  Sender: FDA-Public Use
  Company Number: None

PATIENT
  Age: 64 Year
  Sex: Female
  Weight: 81.6475 kg

DRUGS (3)
  1. CIPROFLOXACIN [Suspect]
     Indication: DRUG INEFFECTIVE
     Dosage: 1 500 MG TAB TWICE DAILY ORAL
     Route: 048
     Dates: start: 20100128, end: 20100205
  2. CIPROFLOXACIN [Suspect]
     Indication: DRUG INEFFECTIVE
     Dosage: 1 500 MG TAB TWICE DAILY ORAL
     Route: 048
     Dates: start: 20100206, end: 20100210
  3. CIPROFLOXACIN [Suspect]

REACTIONS (12)
  - ANXIETY [None]
  - ASTHENIA [None]
  - CONFUSIONAL STATE [None]
  - FATIGUE [None]
  - HYPOAESTHESIA [None]
  - JOINT SWELLING [None]
  - MUSCLE SPASMS [None]
  - MUSCULOSKELETAL DISORDER [None]
  - OEDEMA PERIPHERAL [None]
  - PARAESTHESIA [None]
  - PHOTOPHOBIA [None]
  - TENDON PAIN [None]
